FAERS Safety Report 5031669-9 (Version None)
Quarter: 2006Q2

REPORT INFORMATION
  Report Type: 
  Country: None (occurrence: None)
  Receive Date: 20060616
  Receipt Date: 20060608
  Transmission Date: 20061013
  Serious: Yes (Other)
  Sender: FDA-Public Use
  Company Number: 2006-DE-02475GD

PATIENT
  Age: 68 Year
  Sex: Male

DRUGS (5)
  1. ASPIRIN [Suspect]
     Indication: PLATELET AGGREGATION INHIBITION
     Dates: start: 19950101, end: 20001001
  2. PREDNISONE TAB [Suspect]
     Indication: TEMPORAL ARTERITIS
     Dosage: 12 MG
  3. CLOPIDOGREL [Suspect]
     Indication: PLATELET AGGREGATION INHIBITION
     Dosage: 75 MG
     Dates: start: 20001001
  4. AZATHIOPRINE [Concomitant]
  5. PRAVASTATIN [Concomitant]

REACTIONS (7)
  - CAROTID ARTERY ATHEROMA [None]
  - CAROTID ARTERY STENOSIS [None]
  - CAROTID ARTERY THROMBOSIS [None]
  - CEREBRAL ARTERY STENOSIS [None]
  - CONDITION AGGRAVATED [None]
  - HAEMORRHAGE [None]
  - TRANSIENT ISCHAEMIC ATTACK [None]
